FAERS Safety Report 23939998 (Version 1)
Quarter: 2024Q2

REPORT INFORMATION
  Report Type: Report from Study
  Country: US (occurrence: US)
  Receive Date: 20240605
  Receipt Date: 20240605
  Transmission Date: 20240716
  Serious: Yes (Other)
  Sender: FDA-Public Use
  Company Number: US-JNJFOC-20240576631

PATIENT

DRUGS (7)
  1. REMICADE [Suspect]
     Active Substance: INFLIXIMAB
     Indication: Non-small cell lung cancer
     Route: 041
  2. REMICADE [Suspect]
     Active Substance: INFLIXIMAB
     Indication: Malignant melanoma
  3. MYCOPHENOLATE MOFETIL [Suspect]
     Active Substance: MYCOPHENOLATE MOFETIL
     Route: 065
  4. RITUXIMAB [Suspect]
     Active Substance: RITUXIMAB
     Route: 065
  5. TOCILIZUMAB [Suspect]
     Active Substance: TOCILIZUMAB
     Route: 065
  6. METHOTREXATE [Suspect]
     Active Substance: METHOTREXATE
     Route: 065
  7. TACROLIMUS [Suspect]
     Active Substance: TACROLIMUS
     Route: 065

REACTIONS (12)
  - Hepatitis [Unknown]
  - Colitis [Unknown]
  - Pneumonitis [Unknown]
  - Myocarditis [Unknown]
  - Nephritis [Unknown]
  - Myositis [Unknown]
  - Dermatitis [Unknown]
  - Haematotoxicity [Unknown]
  - Arthritis [Unknown]
  - Nervous system disorder [Unknown]
  - Gastritis [Unknown]
  - Off label use [Unknown]
